FAERS Safety Report 8277847-7 (Version None)
Quarter: 2012Q2

REPORT INFORMATION
  Report Type: 
  Country: None (occurrence: None)
  Receive Date: 20120412
  Receipt Date: 20120402
  Transmission Date: 20120825
  Serious: Yes (Death, Other)
  Sender: FDA-Public Use
  Company Number: AT-CELGENEUS-009-50794-12022806

PATIENT
  Age: 81 Year
  Sex: Male
  Weight: 68 kg

DRUGS (2)
  1. VIDAZA [Suspect]
     Indication: MYELODYSPLASTIC SYNDROME
     Dosage: 130 MILLIGRAM
     Route: 058
     Dates: start: 20111117, end: 20120113
  2. GRANISETRON [Concomitant]
     Dosage: 2 MILLIGRAM
     Route: 065

REACTIONS (5)
  - LARGE INTESTINE PERFORATION [None]
  - SEPSIS [None]
  - RENAL FAILURE [None]
  - NECROTISING COLITIS [None]
  - ENTEROCOLITIS HAEMORRHAGIC [None]
